FAERS Safety Report 20672643 (Version 3)
Quarter: 2022Q4

REPORT INFORMATION
  Report Type: Spontaneous
  Country: US (occurrence: US)
  Receive Date: 20220405
  Receipt Date: 20221116
  Transmission Date: 20230113
  Serious: Yes (Other)
  Sender: FDA-Public Use
  Company Number: US-BRISTOL-MYERS SQUIBB COMPANY-2022-014093

PATIENT
  Age: 69 Year
  Sex: Male

DRUGS (2)
  1. REVLIMID [Suspect]
     Active Substance: LENALIDOMIDE
     Indication: Plasma cell myeloma
     Route: 048
     Dates: start: 202103
  2. REVLIMID [Suspect]
     Active Substance: LENALIDOMIDE
     Dosage: OTHER
     Route: 048
     Dates: start: 202203

REACTIONS (5)
  - Neuropathy peripheral [Unknown]
  - Dermatitis acneiform [Unknown]
  - Light chain analysis abnormal [Unknown]
  - Inappropriate schedule of product administration [Unknown]
  - Rash [Not Recovered/Not Resolved]

NARRATIVE: CASE EVENT DATE: 20220101
